FAERS Safety Report 8185358-2 (Version None)
Quarter: 2012Q1

REPORT INFORMATION
  Report Type: 
  Country: None (occurrence: None)
  Receive Date: 20120305
  Receipt Date: 20120228
  Transmission Date: 20120608
  Serious: Yes (Other)
  Sender: FDA-Public Use
  Company Number: PHHY2012JP013916

PATIENT
  Age: 31 Year
  Sex: Male

DRUGS (15)
  1. RABEPRAZOLE SODIUM [Concomitant]
     Dosage: 10 MG, UNK
     Route: 048
     Dates: start: 20111220
  2. DOPACOL [Concomitant]
     Dosage: 100 MG, UNK
     Route: 048
  3. ALLEGRA [Concomitant]
     Dosage: 60 MG, UNK
     Route: 048
  4. ASPARA-CA [Concomitant]
     Dosage: 200 MG, UNK
     Route: 048
  5. GILENYA [Suspect]
     Indication: MULTIPLE SCLEROSIS
     Dosage: 0.5 MG, UNK
     Route: 048
     Dates: start: 20120117, end: 20120214
  6. REBAMIPIDE [Concomitant]
     Dosage: 200 MG, UNK
     Route: 048
  7. WARFARIN SODIUM [Concomitant]
     Dates: start: 20111220, end: 20120224
  8. DIAZEPAM [Concomitant]
     Dosage: 2 MG, UNK
     Route: 048
  9. WARKMIN [Concomitant]
     Dosage: 0.25 MG, UNK
     Route: 048
  10. LIPITOR [Concomitant]
     Dosage: 5 MG, UNK
     Route: 048
     Dates: start: 20111220
  11. RISUMIC [Concomitant]
     Dosage: 10 MG, UNK
     Route: 048
  12. METHYCOBAL [Concomitant]
     Dosage: 500 MG, UNK
     Route: 048
  13. PURSENNID [Concomitant]
     Dosage: 2 DF, UNK
     Route: 048
  14. MAGMITT [Concomitant]
     Dosage: 1320 MG, UNK
     Route: 048
  15. LIORESAL [Concomitant]
     Dosage: 30 MG, UNK
     Route: 048
     Dates: start: 20111220

REACTIONS (4)
  - LYMPHOCYTE COUNT DECREASED [None]
  - RETINAL HAEMORRHAGE [None]
  - MACULAR OEDEMA [None]
  - WHITE BLOOD CELL COUNT DECREASED [None]
